FAERS Safety Report 9481837 (Version 2)
Quarter: 2013Q3

REPORT INFORMATION
  Report Type: Spontaneous
  Country: US (occurrence: US)
  Receive Date: 20130828
  Receipt Date: 20130828
  Transmission Date: 20140515
  Serious: Yes (Other)
  Sender: FDA-Public Use
  Company Number: US-AMGEN-KDL128441

PATIENT
  Age: 75 Year
  Sex: Female

DRUGS (3)
  1. ENBREL [Suspect]
     Indication: RHEUMATOID ARTHRITIS
     Dosage: 25 MG, 2 TIMES/WK
     Route: 058
     Dates: start: 20050120
  2. ENBREL [Suspect]
     Dosage: 25 MG, 2 TIMES/WK
     Route: 058
     Dates: start: 20050120
  3. LEFLUNOMIDE [Concomitant]
     Dosage: 20 MG, UNK

REACTIONS (4)
  - Squamous cell carcinoma [Unknown]
  - Malaise [Unknown]
  - Bronchitis [Unknown]
  - Injection site pain [Not Recovered/Not Resolved]
